FAERS Safety Report 22073809 (Version 1)
Quarter: 2023Q1

REPORT INFORMATION
  Report Type: Spontaneous
  Country: FR (occurrence: FR)
  Receive Date: 20230308
  Receipt Date: 20230308
  Transmission Date: 20230417
  Serious: Yes (Life-Threatening)
  Sender: FDA-Public Use
  Company Number: None

PATIENT
  Age: 69 Year
  Sex: Male

DRUGS (1)
  1. ATRACURIUM BESYLATE [Suspect]
     Active Substance: ATRACURIUM BESYLATE
     Indication: Neuromuscular blocking therapy
     Dosage: 100 MG, SINGLE
     Route: 042
     Dates: start: 20221102, end: 20221102

REACTIONS (1)
  - Shock [Recovered/Resolved]

NARRATIVE: CASE EVENT DATE: 20221102
